FAERS Safety Report 9938956 (Version 1)
Quarter: 2014Q1

REPORT INFORMATION
  Report Type: Report from Study
  Country: US (occurrence: US)
  Receive Date: 20140303
  Receipt Date: 20140303
  Transmission Date: 20141002
  Serious: No
  Sender: FDA-Public Use
  Company Number: US-ABBVIE-13P-163-1033962-00

PATIENT
  Sex: Female
  Weight: 104.42 kg

DRUGS (4)
  1. HUMIRA [Suspect]
     Indication: IRITIS
     Dates: start: 2012
  2. CELLCEPT [Concomitant]
     Indication: IRITIS
  3. PREDNISONE [Concomitant]
     Indication: IRITIS
  4. PREDNISONE [Concomitant]
     Indication: IRITIS
     Route: 047

REACTIONS (1)
  - Off label use [Not Recovered/Not Resolved]
